FAERS Safety Report 8331304-8 (Version None)
Quarter: 2012Q2

REPORT INFORMATION
  Report Type: 
  Country: None (occurrence: None)
  Receive Date: 20120502
  Receipt Date: 20120416
  Transmission Date: 20120825
  Serious: No
  Sender: FDA-Public Use
  Company Number: US-AMGEN-USASP2011061723

PATIENT
  Age: 55 Year
  Sex: Male

DRUGS (2)
  1. ENBREL [Suspect]
     Indication: PSORIATIC ARTHROPATHY
     Dosage: 50 MG, QWK
     Dates: start: 20100810, end: 20120201
  2. ENBREL [Suspect]
     Indication: PSORIASIS

REACTIONS (12)
  - UPPER-AIRWAY COUGH SYNDROME [None]
  - POLLAKIURIA [None]
  - DIARRHOEA [None]
  - INNER EAR DISORDER [None]
  - HYPERSENSITIVITY [None]
  - EAR INFECTION [None]
  - VERTIGO [None]
  - EAR CONGESTION [None]
  - DYSURIA [None]
  - DYSPEPSIA [None]
  - ARTHRITIS [None]
  - PROSTATOMEGALY [None]
